FAERS Safety Report 7692507-9 (Version None)
Quarter: 2011Q3

REPORT INFORMATION
  Report Type: 
  Country: None (occurrence: None)
  Receive Date: 20110819
  Receipt Date: 20110813
  Transmission Date: 20111222
  Serious: Yes (Other)
  Sender: FDA-Public Use
  Company Number: US-BRISTOL-MYERS SQUIBB COMPANY-15896475

PATIENT
  Age: 62 Year
  Sex: Female

DRUGS (11)
  1. LEXAPRO [Concomitant]
     Dosage: 1DF= 10 UNITS NOS
  2. BENAZEPRIL HYDROCHLORIDE [Concomitant]
     Dosage: 1DF= 5 UNITS NOS
  3. BENTYL [Concomitant]
     Dosage: 1DF= 10 UNITS NOS
  4. ZETIA [Concomitant]
     Dosage: 1DF=10 UNITS NOS
  5. PROTONIX [Concomitant]
  6. NYSTATIN [Concomitant]
  7. TYLENOL-500 [Concomitant]
  8. METFORMIN HCL [Suspect]
     Indication: DIABETES MELLITUS
     Dosage: 1DF=1000 UNITS NOS
     Route: 048
     Dates: start: 20060601, end: 20101123
  9. ACETYLSALICYLIC ACID SRT [Concomitant]
     Dosage: 1DF= 81 UNITS NOS
  10. BYETTA [Suspect]
     Dosage: BYETTA DC
     Dates: end: 20100806
  11. GLIPIZIDE [Concomitant]
     Dosage: 1DF= 5 UNITS NOS GLIPIZIDE ER

REACTIONS (3)
  - ABDOMINAL PAIN UPPER [None]
  - NAUSEA [None]
  - PANCREATITIS [None]
